FAERS Safety Report 9228790 (Version 4)
Quarter: 2013Q2

REPORT INFORMATION
  Report Type: Spontaneous
  Country: US (occurrence: US)
  Receive Date: 20130412
  Receipt Date: 20130621
  Transmission Date: 20140414
  Serious: No
  Sender: FDA-Public Use
  Company Number: US-VERTEX PHARMACEUTICALS INC.-2013-004723

PATIENT
  Age: 54 Year
  Sex: Male
  Weight: 72 kg

DRUGS (7)
  1. INCIVEK [Suspect]
     Indication: HEPATITIS C
     Dosage: 750 MG, TID
     Route: 048
     Dates: start: 20130213, end: 20130503
  2. RIBAVIRIN [Suspect]
     Indication: HEPATITIS C
     Dosage: 600 MG, BID
     Dates: start: 20130215
  3. RIBAVIRIN [Suspect]
     Dosage: 600 MG AM, 400 MG PM
  4. RIBAVIRIN [Suspect]
     Dosage: 400 MG AM, 200 MG PM
     Dates: end: 20130507
  5. PEGASYS [Suspect]
     Indication: HEPATITIS C
     Dosage: 180 ?G, QW
     Route: 058
     Dates: start: 20130215, end: 20130507
  6. ALPRAZOLAM [Concomitant]
  7. GABAPENTIN [Concomitant]
     Dosage: UNK
     Dates: start: 201304

REACTIONS (9)
  - Headache [Not Recovered/Not Resolved]
  - Oral discharge [Recovered/Resolved]
  - Lip ulceration [Recovered/Resolved]
  - Decreased appetite [Recovered/Resolved]
  - Pain in extremity [Unknown]
  - Rash generalised [Recovered/Resolved]
  - Red blood cell count decreased [Recovered/Resolved]
  - Drug ineffective [Recovered/Resolved]
  - Nausea [Recovered/Resolved]
